FAERS Safety Report 4559349-4 (Version None)
Quarter: 2005Q1

REPORT INFORMATION
  Report Type: 
  Country: None (occurrence: None)
  Receive Date: 20050124
  Receipt Date: 20040421
  Transmission Date: 20050727
  Serious: Yes (Other)
  Sender: FDA-Public Use
  Company Number: PHEH2004US04528

PATIENT
  Age: 50 Year
  Sex: Female

DRUGS (6)
  1. GONIOSOL (NVO) [Suspect]
     Indication: EYE LASER SURGERY
     Dosage: 3 GTT, ONCE/SINGLE
     Dates: start: 20040316, end: 20040316
  2. ALATAN [Concomitant]
     Indication: ANAESTHESIA
     Dosage: 1 GTT, ONCE/SINGLE
     Dates: start: 20040316, end: 20040316
  3. TROPICAMIDE [Concomitant]
     Indication: MYDRIASIS
     Dosage: 1 GTT, ONCE/SINGLE
     Dates: start: 20040316, end: 20040316
  4. PHENYLEPHRINE HYDROCHLORIDE [Concomitant]
     Indication: MYDRIASIS
     Dosage: 1 GTT, ONCE/SINGLE
     Dates: start: 20040316, end: 20040316
  5. MAXITROL [Concomitant]
     Indication: INFLAMMATION
     Dosage: 1 GTT, QID
     Dates: start: 20040317, end: 20040321
  6. EYE DROPS [Concomitant]

REACTIONS (6)
  - BLINDNESS [None]
  - CORNEAL EROSION [None]
  - CORNEAL SCAR [None]
  - EYE PAIN [None]
  - EYELID OPERATION [None]
  - INJURY CORNEAL [None]
